FAERS Safety Report 22600495 (Version 1)
Quarter: 2023Q2

REPORT INFORMATION
  Report Type: Spontaneous
  Country: US (occurrence: None)
  Receive Date: 20230613
  Receipt Date: 20230613
  Transmission Date: 20230721
  Serious: No
  Sender: FDA-Public Use
  Company Number: None

PATIENT
  Age: 67 Year
  Sex: Female
  Weight: 88.45 kg

DRUGS (4)
  1. KISQALI [Suspect]
     Active Substance: RIBOCICLIB
     Indication: Breast cancer female
     Dosage: FREQUENCY : DAILY;?
     Route: 048
     Dates: start: 20220804
  2. ASPIRIN [Concomitant]
     Active Substance: ASPIRIN
  3. LETROZOLE [Concomitant]
  4. LISINOPRIL [Concomitant]

REACTIONS (2)
  - Abdominal pain upper [None]
  - Fatigue [None]
